FAERS Safety Report 21334047 (Version 1)
Quarter: 2022Q3

REPORT INFORMATION
  Report Type: Spontaneous
  Country: US (occurrence: US)
  Receive Date: 20220914
  Receipt Date: 20220914
  Transmission Date: 20221026
  Serious: No
  Sender: FDA-Public Use
  Company Number: US-LANNETT COMPANY, INC.-US-2022LAN000017

PATIENT
  Sex: Male

DRUGS (2)
  1. LACTULOSE [Suspect]
     Active Substance: LACTULOSE
     Indication: Bowel movement irregularity
     Dosage: 30 ML EVERY 6 HOURS APPROXIMATELY 4-5 MONTHS AGO
     Route: 048
     Dates: start: 2021
  2. EPSOM SALT [Concomitant]
     Active Substance: MAGNESIUM SULFATE
     Indication: Product used for unknown indication
     Dosage: 6 TEASPOONS DISSOLVED WITH WATER
     Route: 065

REACTIONS (2)
  - Flatulence [Not Recovered/Not Resolved]
  - Drug ineffective [Unknown]
